FAERS Safety Report 5931912-5 (Version None)
Quarter: 2008Q4

REPORT INFORMATION
  Report Type: 
  Country: None (occurrence: None)
  Receive Date: 20081027
  Receipt Date: 20081015
  Transmission Date: 20090506
  Serious: Yes (Other)
  Sender: FDA-Public Use
  Company Number: GB-PFIZER INC-2008087246

PATIENT
  Age: 66 Year
  Sex: Female
  Weight: 75 kg

DRUGS (2)
  1. DEPO-MEDRONE [Suspect]
     Indication: MUSCULOSKELETAL PAIN
     Route: 030
     Dates: start: 20080731, end: 20080731
  2. CO-DYDRAMOL [Concomitant]
     Indication: PAIN

REACTIONS (2)
  - BRADYCARDIA [None]
  - DIZZINESS [None]
